FAERS Safety Report 8018442-4 (Version None)
Quarter: 2011Q4

REPORT INFORMATION
  Report Type: 
  Country: None (occurrence: None)
  Receive Date: 20111227
  Receipt Date: 20111218
  Transmission Date: 20120403
  Serious: Yes (Death, Other)
  Sender: FDA-Public Use
  Company Number: 2011ST000558

PATIENT
  Age: 56 Year
  Sex: Female
  Weight: 75 kg

DRUGS (4)
  1. AMPHOTERICIN B [Suspect]
     Indication: PROPHYLAXIS
     Dosage: 20 MG.KG, IV
     Route: 042
     Dates: start: 19960924, end: 19961007
  2. ABELCET [Suspect]
     Indication: LUNG INFECTION
     Dosage: 400 MG, QD, IV
     Route: 042
     Dates: start: 19961007, end: 19961123
  3. STEROID [Concomitant]
  4. CYCLOSPORINE [Concomitant]

REACTIONS (4)
  - LUNG INFECTION [None]
  - BLOOD CREATININE INCREASED [None]
  - MENTAL STATUS CHANGES [None]
  - BRAIN MASS [None]
